FAERS Safety Report 25957443 (Version 2)
Quarter: 2025Q4

REPORT INFORMATION
  Report Type: Report from Study
  Country: US (occurrence: US)
  Receive Date: 20251024
  Receipt Date: 20251224
  Transmission Date: 20260118
  Serious: No
  Sender: PFIZER
  Company Number: US-PFIZER INC-202500204619

PATIENT
  Age: 12 Year
  Sex: Male

DRUGS (1)
  1. GENOTROPIN [Suspect]
     Active Substance: SOMATROPIN
     Indication: Precocious puberty
     Dosage: 2.4 MG, 1X/DAY (IN THE EVENING)
     Dates: start: 202405

REACTIONS (5)
  - Device information output issue [Unknown]
  - Device leakage [Unknown]
  - Product odour abnormal [Unknown]
  - Poor quality product administered [Unknown]
  - Off label use [Unknown]
